FAERS Safety Report 10247023 (Version 3)
Quarter: 2014Q3

REPORT INFORMATION
  Report Type: Spontaneous
  Country: FR (occurrence: FR)
  Receive Date: 20140619
  Receipt Date: 20140710
  Transmission Date: 20150326
  Serious: Yes (Life-Threatening, Hospitalization, Other)
  Sender: FDA-Public Use
  Company Number: FR-PFIZER INC-2014162280

PATIENT
  Age: 55 Year
  Sex: Female

DRUGS (6)
  1. SOLU-MEDROL [Suspect]
     Active Substance: METHYLPREDNISOLONE SODIUM SUCCINATE
     Indication: VOMITING
     Dosage: 120 MG, 1X/DAY
     Route: 042
     Dates: start: 20140520, end: 20140522
  2. EPIRUBICIN HCL [Suspect]
     Active Substance: EPIRUBICIN HYDROCHLORIDE
     Indication: BREAST CANCER
     Dosage: 100 MG/M2, SINGLE
     Route: 042
     Dates: start: 20140520, end: 20140520
  3. EMEND [Suspect]
     Active Substance: APREPITANT
     Indication: VOMITING
     Dosage: 1 DF, 1X/DAY
     Route: 048
     Dates: start: 20140520, end: 20140522
  4. ENDOXAN [Suspect]
     Active Substance: CYCLOPHOSPHAMIDE
     Indication: BREAST CANCER
     Dosage: 500 MG/M2, SINGLE
     Route: 042
     Dates: start: 20140520, end: 20140520
  5. FLUOROURACILE PFIZER [Suspect]
     Active Substance: FLUOROURACIL
     Indication: BREAST CANCER
     Dosage: 500 MG/M2, SINGLE
     Route: 042
     Dates: start: 20140520, end: 20140520
  6. ONDANSETRON HYDROCHLORIDE. [Suspect]
     Active Substance: ONDANSETRON HYDROCHLORIDE
     Indication: VOMITING
     Dosage: 8 MG, SINGLE
     Route: 042
     Dates: start: 20140520, end: 20140520

REACTIONS (4)
  - Generalised tonic-clonic seizure [Unknown]
  - Inappropriate antidiuretic hormone secretion [Recovered/Resolved]
  - Vomiting [Unknown]
  - Hyponatraemia [Recovered/Resolved]

NARRATIVE: CASE EVENT DATE: 201405
